FAERS Safety Report 17123215 (Version 1)
Quarter: 2019Q4

REPORT INFORMATION
  Report Type: Spontaneous
  Country: US (occurrence: US)
  Receive Date: 20191129
  Receipt Date: 20191129
  Transmission Date: 20200122
  Serious: No
  Sender: FDA-Public Use
  Company Number: None

PATIENT
  Age: 67 Year
  Sex: Female
  Weight: 70.65 kg

DRUGS (1)
  1. BLESSING IN A BOTTLE [HERBALS] [Suspect]
     Active Substance: HERBALS
     Indication: ARTHRITIS
     Dosage: ?          QUANTITY:20 CAPSULE(S);?
     Route: 048
     Dates: start: 20191125, end: 20191129

REACTIONS (4)
  - Hyperhidrosis [None]
  - Malaise [None]
  - Nausea [None]
  - Vertigo [None]

NARRATIVE: CASE EVENT DATE: 20191129
